FAERS Safety Report 23618691 (Version 4)
Quarter: 2024Q3

REPORT INFORMATION
  Report Type: Report from Study
  Country: US (occurrence: US)
  Receive Date: 20240311
  Receipt Date: 20240716
  Transmission Date: 20241016
  Serious: Yes (Death)
  Sender: ABBVIE
  Company Number: US-ABBVIE-5674237

PATIENT
  Age: 81 Year
  Sex: Female

DRUGS (5)
  1. VENCLEXTA [Suspect]
     Active Substance: VENETOCLAX
     Indication: Anaemia
     Dosage: FORM STRENGTH: 100 MILLIGRAM, TAKE 1 TABLET(S) BY MOUTH (100MG) WEEK 1
     Route: 048
     Dates: start: 20230818
  2. VENCLEXTA [Suspect]
     Active Substance: VENETOCLAX
     Indication: Anaemia
     Dosage: FORM STRENGTH: 100 MILLIGRAM, TAKE 2 TABLET(S) BY MOUTH (200MG) WEEK 2
     Route: 048
  3. VENCLEXTA [Suspect]
     Active Substance: VENETOCLAX
     Indication: Anaemia
     Dosage: FORM STRENGTH: 100 MILLIGRAM, TAKE 3 TABLET(S) BY MOUTH (300MG) WEEK 3
     Route: 048
  4. VENCLEXTA [Suspect]
     Active Substance: VENETOCLAX
     Indication: Anaemia
     Dosage: FORM STRENGTH: 100 MILLIGRAM, TAKE 4 TABLET(S) BY MOUTH (400MG) WEEK 4  AND ONWARDS
     Route: 048
  5. VENCLEXTA [Suspect]
     Active Substance: VENETOCLAX
     Indication: Anaemia
     Dosage: FORM STRENGTH: 100 MILLIGRAM, TAKE 4 TABLET(S) BY MOUTH (400MG) FOR 30 DAYS
     Route: 048

REACTIONS (2)
  - Death [Fatal]
  - Off label use [Unknown]

NARRATIVE: CASE EVENT DATE: 20230818
